FAERS Safety Report 6381951-8 (Version None)
Quarter: 2009Q3

REPORT INFORMATION
  Report Type: 
  Country: None (occurrence: None)
  Receive Date: 20090925
  Receipt Date: 20090911
  Transmission Date: 20100115
  Serious: Yes (Hospitalization)
  Sender: FDA-Public Use
  Company Number: 8052352

PATIENT

DRUGS (1)
  1. CIMZIA [Suspect]
     Indication: COLITIS ULCERATIVE
     Dosage: SC
     Route: 058

REACTIONS (2)
  - COLITIS ULCERATIVE [None]
  - DISEASE RECURRENCE [None]
